FAERS Safety Report 4334852-0 (Version None)
Quarter: 2004Q2

REPORT INFORMATION
  Report Type: 
  Country: None (occurrence: None)
  Receive Date: 20040405
  Receipt Date: 20040322
  Transmission Date: 20050107
  Serious: Yes (Other)
  Sender: FDA-Public Use
  Company Number: 2004206101JP

PATIENT
  Age: 45 Year
  Sex: Female

DRUGS (2)
  1. PROVERA [Suspect]
     Indication: MENOPAUSAL SYMPTOMS
     Dosage: 2.5 MG, QD, ORAL
     Route: 048
  2. CONJUGATED ESTROGENS [Suspect]
     Indication: MENOPAUSAL SYMPTOMS
     Dosage: 0.3125 MG, QD, ORAL
     Route: 048

REACTIONS (1)
  - BREAST CANCER [None]
